FAERS Safety Report 5497738-4 (Version None)
Quarter: 2007Q4

REPORT INFORMATION
  Report Type: 
  Country: None (occurrence: None)
  Receive Date: 20071025
  Receipt Date: 20070215
  Transmission Date: 20080405
  Serious: No
  Sender: FDA-Public Use
  Company Number: A0639738A

PATIENT
  Age: 44 Year
  Sex: Female

DRUGS (6)
  1. ADVAIR DISKUS 100/50 [Suspect]
     Dosage: 1PUFF TWICE PER DAY
     Route: 055
     Dates: start: 20060101
  2. COREG [Suspect]
     Indication: CARDIOMYOPATHY
     Route: 048
     Dates: start: 19990101
  3. COZAAR [Concomitant]
  4. LASIX [Concomitant]
  5. ADVAIR DISKUS 100/50 [Concomitant]
  6. SPIRIVA [Concomitant]

REACTIONS (5)
  - DIZZINESS [None]
  - DRUG INEFFECTIVE [None]
  - DRY SKIN [None]
  - DYSPNOEA [None]
  - HYPERAESTHESIA [None]
